FAERS Safety Report 10354086 (Version 1)
Quarter: 2014Q3

REPORT INFORMATION
  Report Type: Spontaneous
  Country: US (occurrence: US)
  Receive Date: 20140731
  Receipt Date: 20140731
  Transmission Date: 20150326
  Serious: No
  Sender: FDA-Public Use
  Company Number: US-PFIZER INC-2014209807

PATIENT
  Age: 53 Year
  Sex: Female
  Weight: 97.51 kg

DRUGS (1)
  1. COLESTIPOL HCL [Suspect]
     Active Substance: COLESTIPOL HYDROCHLORIDE
     Indication: GALLBLADDER DISORDER
     Dosage: 1 MG, 2X/DAY
     Route: 048

REACTIONS (3)
  - Drug ineffective [Unknown]
  - Malaise [Unknown]
  - Diarrhoea [Unknown]

NARRATIVE: CASE EVENT DATE: 201407
